FAERS Safety Report 7779228-9 (Version None)
Quarter: 2011Q3

REPORT INFORMATION
  Report Type: 
  Country: None (occurrence: None)
  Receive Date: 20110926
  Receipt Date: 20110915
  Transmission Date: 20111222
  Serious: Yes (Hospitalization, Other)
  Sender: FDA-Public Use
  Company Number: IL-ASTRAZENECA-2011SE55495

PATIENT
  Age: 66 Year
  Sex: Male

DRUGS (5)
  1. ATENOLOL [Concomitant]
  2. ASPIRIN [Concomitant]
  3. BUPIVACAINE HCL [Suspect]
     Indication: BACK PAIN
     Route: 008
  4. CAPTOPRIL [Concomitant]
  5. PRAVASTATIN [Concomitant]

REACTIONS (1)
  - PRINZMETAL ANGINA [None]
